FAERS Safety Report 5708987-1 (Version None)
Quarter: 2008Q2

REPORT INFORMATION
  Report Type: 
  Country: None (occurrence: None)
  Receive Date: 20080414
  Receipt Date: 20080414
  Transmission Date: 20081010
  Serious: No
  Sender: FDA-Public Use
  Company Number: None

PATIENT
  Age: 64 Year
  Sex: Female
  Weight: 57.1532 kg

DRUGS (1)
  1. PALGIC MIKART, INC [Suspect]
     Indication: RASH
     Dosage: 1 TEASPOON 3 X DAY (DURATION: TOOK ONLY 1 TEASPOON)
     Dates: start: 20080325, end: 20080325

REACTIONS (17)
  - ASTHENIA [None]
  - BLOOD PRESSURE INCREASED [None]
  - CRYING [None]
  - DYSPHAGIA [None]
  - DYSPNOEA [None]
  - FATIGUE [None]
  - FEELING ABNORMAL [None]
  - IMPAIRED DRIVING ABILITY [None]
  - LIP BLISTER [None]
  - LIP SWELLING [None]
  - PALPITATIONS [None]
  - PARAESTHESIA [None]
  - PHARYNGEAL OEDEMA [None]
  - SOMNOLENCE [None]
  - SWELLING FACE [None]
  - SWOLLEN TONGUE [None]
  - TREMOR [None]
